FAERS Safety Report 8623165-4 (Version None)
Quarter: 2012Q3

REPORT INFORMATION
  Report Type: 
  Country: None (occurrence: None)
  Receive Date: 20120827
  Receipt Date: 20120821
  Transmission Date: 20120928
  Serious: Yes (Hospitalization)
  Sender: FDA-Public Use
  Company Number: CN-EISAI INC-E2020-11216-SPO-CN

PATIENT
  Age: 59 Year
  Sex: Female
  Weight: 55 kg

DRUGS (5)
  1. ARICEPT [Suspect]
     Indication: PARKINSON'S DISEASE
     Route: 048
     Dates: start: 20120808, end: 20120817
  2. AMANTADINE HCL [Concomitant]
     Indication: PARKINSON'S DISEASE
     Route: 048
  3. ARICEPT [Suspect]
     Indication: DEMENTIA
  4. LEVODOPA AND BENSERAZIDE [Concomitant]
     Indication: PARKINSON'S DISEASE
     Route: 048
  5. PRAMIPEXOLE DIHYCHLORIDE [Concomitant]
     Indication: PARKINSON'S DISEASE
     Route: 048

REACTIONS (3)
  - SPEECH DISORDER [None]
  - PARKINSONISM [None]
  - AKINESIA [None]
